FAERS Safety Report 13756986 (Version 13)
Quarter: 2018Q2

REPORT INFORMATION
  Report Type: Report from Study
  Country: US (occurrence: US)
  Receive Date: 20170714
  Receipt Date: 20180518
  Transmission Date: 20180711
  Serious: Yes (Hospitalization, Other)
  Sender: FDA-Public Use
  Company Number: US-B.I. PHARMACEUTICALS,INC./RIDGEFIELD-2017-BI-039257

PATIENT
  Age: 10 Year
  Sex: Female
  Weight: 46.8 kg

DRUGS (49)
  1. MAGIC MOUTHWASH [Concomitant]
     Active Substance: DIPHENHYDRAMINE HYDROCHLORIDE\LIDOCAINE HYDROCHLORIDE\NYSTATIN
     Indication: MOUTH INJURY
     Route: 065
     Dates: start: 20170709
  2. LISINOPRIL. [Concomitant]
     Active Substance: LISINOPRIL
     Indication: CARDIAC FAILURE
     Route: 048
     Dates: start: 20170719, end: 20170720
  3. CALCIUM CARBONATE. [Concomitant]
     Active Substance: CALCIUM CARBONATE
     Indication: MINERAL SUPPLEMENTATION
     Route: 048
     Dates: start: 20170725
  4. PLAQUENIL [Concomitant]
     Active Substance: HYDROXYCHLOROQUINE SULFATE
     Indication: SYSTEMIC LUPUS ERYTHEMATOSUS
     Route: 048
     Dates: start: 20170725
  5. TYLENOL [Concomitant]
     Active Substance: ACETAMINOPHEN
     Indication: CARDIAC FAILURE
  6. COREG [Concomitant]
     Active Substance: CARVEDILOL
     Route: 048
     Dates: start: 20170718
  7. CYTOXAN [Concomitant]
     Active Substance: CYCLOPHOSPHAMIDE
     Indication: MYOPATHY
     Route: 042
     Dates: start: 20170716, end: 20170716
  8. MAGNESIUM SULFATE. [Concomitant]
     Active Substance: MAGNESIUM SULFATE
     Indication: VENTRICULAR EXTRASYSTOLES
     Route: 042
     Dates: start: 20170716, end: 20170716
  9. CARVEDILOL. [Concomitant]
     Active Substance: CARVEDILOL
     Indication: DRUG THERAPY
     Route: 048
     Dates: start: 20170725
  10. NORETHINDRONE. [Concomitant]
     Active Substance: NORETHINDRONE
     Indication: PROGESTERONE
     Route: 048
     Dates: start: 20170725
  11. PREDNISONE. [Concomitant]
     Active Substance: PREDNISONE
     Indication: STEROID THERAPY
     Route: 048
     Dates: start: 20170725
  12. SPIRONOLACTONE. [Concomitant]
     Active Substance: SPIRONOLACTONE
     Indication: DRUG THERAPY
  13. VITAMIN D2 [Concomitant]
     Active Substance: ERGOCALCIFEROL
     Indication: VITAMIN SUPPLEMENTATION
     Route: 048
     Dates: start: 20170725
  14. VITAMIN D2 [Concomitant]
     Active Substance: ERGOCALCIFEROL
     Indication: DRUG THERAPY
  15. PLAQUENIL [Concomitant]
     Active Substance: HYDROXYCHLOROQUINE SULFATE
     Indication: DRUG THERAPY
  16. COREG [Concomitant]
     Active Substance: CARVEDILOL
     Indication: DRUG THERAPY
     Route: 048
     Dates: start: 20170717
  17. MAGNESIUM SULFATE. [Concomitant]
     Active Substance: MAGNESIUM SULFATE
     Indication: VENTRICULAR EXTRASYSTOLES
  18. FUROSEMIDE. [Concomitant]
     Active Substance: FUROSEMIDE
     Indication: FLUID OVERLOAD
     Route: 048
     Dates: start: 20170725
  19. PREDNISONE. [Concomitant]
     Active Substance: PREDNISONE
     Indication: CARDIAC FAILURE
  20. VITAMIN D2 [Concomitant]
     Active Substance: ERGOCALCIFEROL
     Indication: CARDIAC FAILURE
  21. DABIGATRAN [Suspect]
     Active Substance: DABIGATRAN
     Indication: DEEP VEIN THROMBOSIS
     Route: 048
  22. METHYLPREDNISOLONE. [Concomitant]
     Active Substance: METHYLPREDNISOLONE
     Indication: SYSTEMIC LUPUS ERYTHEMATOSUS
     Route: 042
     Dates: start: 20170713
  23. GAMUNEX [Concomitant]
     Active Substance: HUMAN IMMUNOGLOBULIN G
     Indication: PLATELET COUNT DECREASED
     Route: 042
     Dates: start: 20170713, end: 20170714
  24. ZOFRAN [Concomitant]
     Active Substance: ONDANSETRON HYDROCHLORIDE
     Indication: NAUSEA
     Route: 042
     Dates: start: 20170716, end: 20170719
  25. NORETHINDRONE. [Concomitant]
     Active Substance: NORETHINDRONE
     Indication: CARDIAC FAILURE
  26. SPIRONOLACTONE. [Concomitant]
     Active Substance: SPIRONOLACTONE
     Indication: CARDIAC FAILURE
  27. SPIRONOLACTONE. [Concomitant]
     Active Substance: SPIRONOLACTONE
     Indication: CARDIAC FAILURE
  28. MULTIVITAMIN [Concomitant]
     Active Substance: VITAMINS
     Indication: CARDIAC FAILURE
  29. HYDROXYCHLOROQUINE [Concomitant]
     Active Substance: HYDROXYCHLOROQUINE
     Indication: SYSTEMIC LUPUS ERYTHEMATOSUS
     Route: 048
     Dates: start: 20170302
  30. POLYETHYLENE GLYCOL [Concomitant]
     Active Substance: POLYETHYLENE GLYCOLS
     Indication: CONSTIPATION
     Route: 048
     Dates: start: 20170302
  31. LISINOPRIL. [Concomitant]
     Active Substance: LISINOPRIL
     Indication: DRUG THERAPY
     Route: 048
     Dates: start: 20170725
  32. NORETHINDRONE. [Concomitant]
     Active Substance: NORETHINDRONE
     Indication: CARDIAC FAILURE
  33. VITAMIN D2 [Concomitant]
     Active Substance: ERGOCALCIFEROL
     Indication: CARDIAC FAILURE
     Route: 048
     Dates: start: 20170303
  34. PLAQUENIL [Concomitant]
     Active Substance: HYDROXYCHLOROQUINE SULFATE
     Indication: CARDIAC FAILURE
     Route: 048
     Dates: start: 20170303
  35. TYLENOL [Concomitant]
     Active Substance: ACETAMINOPHEN
     Indication: PAIN
     Route: 048
  36. TYLENOL [Concomitant]
     Active Substance: ACETAMINOPHEN
     Indication: DRUG THERAPY
  37. MULTIVITAMIN [Concomitant]
     Active Substance: VITAMINS
     Indication: VITAMIN SUPPLEMENTATION
     Dosage: UNIT DOSE: 2 TABLETS DAILY
     Route: 048
  38. MULTIVITAMIN [Concomitant]
     Active Substance: VITAMINS
     Indication: DRUG THERAPY
  39. ERGOCALCIFEROL. [Concomitant]
     Active Substance: ERGOCALCIFEROL
     Indication: VITAMIN SUPPLEMENTATION
     Route: 048
     Dates: start: 20170302
  40. MESNA. [Concomitant]
     Active Substance: MESNA
     Indication: ADJUVANT THERAPY
     Route: 042
     Dates: start: 20170716, end: 20170717
  41. PREDNISONE. [Concomitant]
     Active Substance: PREDNISONE
     Indication: DRUG THERAPY
  42. SPIRONOLACTONE. [Concomitant]
     Active Substance: SPIRONOLACTONE
     Indication: DIURETIC THERAPY
     Route: 048
     Dates: start: 20170725
  43. PLAQUENIL [Concomitant]
     Active Substance: HYDROXYCHLOROQUINE SULFATE
     Indication: CARDIAC FAILURE
  44. TYLENOL [Concomitant]
     Active Substance: ACETAMINOPHEN
     Indication: CARDIAC FAILURE
  45. MULTIVITAMIN [Concomitant]
     Active Substance: VITAMINS
     Indication: CARDIAC FAILURE
  46. CYTOXAN [Concomitant]
     Active Substance: CYCLOPHOSPHAMIDE
     Indication: MYOPATHY
     Route: 042
     Dates: start: 20170716, end: 20170716
  47. LASIX [Concomitant]
     Active Substance: FUROSEMIDE
     Indication: DIURETIC THERAPY
     Route: 048
     Dates: start: 20170714
  48. NORETHINDRONE. [Concomitant]
     Active Substance: NORETHINDRONE
     Indication: DRUG THERAPY
  49. PREDNISONE. [Concomitant]
     Active Substance: PREDNISONE
     Indication: CARDIAC FAILURE

REACTIONS (7)
  - Pleural effusion [Recovered/Resolved]
  - Gastritis [Recovered/Resolved]
  - Myocarditis [Recovered/Resolved]
  - Pericardial effusion [Recovered/Resolved]
  - Cardiac failure [Not Recovered/Not Resolved]
  - Lupus nephritis [Recovered/Resolved]
  - Vasculitis cerebral [Not Recovered/Not Resolved]

NARRATIVE: CASE EVENT DATE: 20170706
